FAERS Safety Report 5199881-6 (Version None)
Quarter: 2007Q1

REPORT INFORMATION
  Report Type: 
  Country: None (occurrence: None)
  Receive Date: 20070102
  Receipt Date: 20070102
  Transmission Date: 20070707
  Serious: Yes (Life-Threatening, Hospitalization)
  Sender: FDA-Public Use
  Company Number: None

PATIENT
  Age: 50 Year
  Sex: Male
  Weight: 63.4 kg

DRUGS (13)
  1. GLEEVEC [Suspect]
     Indication: RENAL CELL CARCINOMA STAGE UNSPECIFIED
     Dosage: 600MG   PER DAY  PO
     Route: 048
     Dates: start: 20061206, end: 20061228
  2. RAD001     2.5MG     NOVARTIS [Suspect]
     Indication: RENAL CELL CARCINOMA STAGE UNSPECIFIED
     Dosage: 2.5MG  PER DAY  PO
     Route: 048
     Dates: start: 20061206, end: 20061228
  3. OXYCONTIN [Concomitant]
  4. OXYCODONE HCL [Concomitant]
  5. LASIX [Concomitant]
  6. SENOKOT [Concomitant]
  7. DEXAMETHASONE [Concomitant]
  8. LEXAPRO [Concomitant]
  9. MEGACE [Concomitant]
  10. PROMETHAZINE [Concomitant]
  11. PROTONIX [Concomitant]
  12. REGLAN [Concomitant]
  13. ALDACTONE [Concomitant]

REACTIONS (6)
  - ABDOMINAL PAIN [None]
  - AZOTAEMIA [None]
  - DEHYDRATION [None]
  - NAUSEA [None]
  - RENAL FAILURE ACUTE [None]
  - VOMITING [None]
